FAERS Safety Report 8996850 (Version 1)
Quarter: 2012Q4

REPORT INFORMATION
  Report Type: Spontaneous
  Country: US (occurrence: None)
  Receive Date: 20121228
  Receipt Date: 20121228
  Transmission Date: 20130627
  Serious: Yes (Life-Threatening, Other)
  Sender: FDA-Public Use
  Company Number: None

PATIENT
  Sex: Female
  Weight: 83.92 kg

DRUGS (1)
  1. ALBUTEROL [Suspect]
     Indication: COPD
     Dosage: 2 puffs inhale  q 2 hours prn   inhale   inh
     Route: 055

REACTIONS (4)
  - Tremor [None]
  - Palpitations [None]
  - Activities of daily living impaired [None]
  - Drug intolerance [None]
